FAERS Safety Report 18728435 (Version 1)
Quarter: 2021Q1

REPORT INFORMATION
  Report Type: Spontaneous
  Country: LT (occurrence: LT)
  Receive Date: 20210111
  Receipt Date: 20210111
  Transmission Date: 20210419
  Serious: Yes (Other)
  Sender: FDA-Public Use
  Company Number: LT-AMGEN-LTUSP2021003403

PATIENT
  Sex: Male

DRUGS (1)
  1. AIMOVIG [Suspect]
     Active Substance: ERENUMAB-AOOE
     Indication: MIGRAINE
     Dosage: 70 MILLIGRAM
     Route: 065

REACTIONS (6)
  - Blood pressure increased [Recovered/Resolved]
  - Tachycardia [Unknown]
  - Blood pressure increased [Unknown]
  - Herpes zoster [Unknown]
  - Heart rate irregular [Unknown]
  - Tachycardia [Recovered/Resolved]
